FAERS Safety Report 15971254 (Version 1)
Quarter: 2019Q1

REPORT INFORMATION
  Report Type: Spontaneous
  Country: US (occurrence: US)
  Receive Date: 20190215
  Receipt Date: 20190215
  Transmission Date: 20190418
  Serious: Yes (Other)
  Sender: FDA-Public Use
  Company Number: PHHY2019US034920

PATIENT
  Age: 34 Year
  Sex: Female

DRUGS (2)
  1. AMIODARONE [Suspect]
     Active Substance: AMIODARONE
     Indication: TACHYCARDIA
     Dosage: 150 MG, UNK
     Route: 040
  2. AMIODARONE [Suspect]
     Active Substance: AMIODARONE
     Dosage: 1 MG/MIN
     Route: 041

REACTIONS (6)
  - Atrioventricular block second degree [Unknown]
  - Mitral valve incompetence [Unknown]
  - Hypotension [Unknown]
  - Bradycardia [Unknown]
  - Brugada syndrome [Unknown]
  - Ventricular tachycardia [Unknown]
